FAERS Safety Report 19740039 (Version 2)
Quarter: 2021Q4

REPORT INFORMATION
  Report Type: Spontaneous
  Country: FR (occurrence: FR)
  Receive Date: 20210824
  Receipt Date: 20211011
  Transmission Date: 20220303
  Serious: Yes (Other)
  Sender: FDA-Public Use
  Company Number: FR-ASTRAZENECA-2021A100549

PATIENT
  Age: 77 Year
  Sex: Male

DRUGS (17)
  1. FORMOTEROL [Suspect]
     Active Substance: FORMOTEROL
     Indication: Bronchiolitis
     Dosage: UNK
     Route: 055
     Dates: start: 2019
  2. FORMOTEROL [Suspect]
     Active Substance: FORMOTEROL
     Indication: Bronchiectasis
  3. AZITHROMYCIN ANHYDROUS [Suspect]
     Active Substance: AZITHROMYCIN ANHYDROUS
     Indication: Analgesic intervention supportive therapy
     Dosage: 250 MILLIGRAM
     Dates: start: 2019
  4. AZITHROMYCIN ANHYDROUS [Suspect]
     Active Substance: AZITHROMYCIN ANHYDROUS
     Indication: Bronchiolitis
  5. AZITHROMYCIN ANHYDROUS [Suspect]
     Active Substance: AZITHROMYCIN ANHYDROUS
     Indication: Bronchiectasis
  6. GLYCOPYRRONIUM [Suspect]
     Active Substance: GLYCOPYRRONIUM
     Indication: Bronchiectasis
     Dosage: UNK
     Dates: start: 2019
  7. GLYCOPYRRONIUM [Suspect]
     Active Substance: GLYCOPYRRONIUM
     Indication: Bronchiolitis
  8. BECLOMETHASONE DIPROPIONATE [Suspect]
     Active Substance: BECLOMETHASONE DIPROPIONATE
     Indication: Bronchiolitis
     Dosage: UNK
     Dates: start: 2019
  9. BECLOMETHASONE DIPROPIONATE [Suspect]
     Active Substance: BECLOMETHASONE DIPROPIONATE
     Indication: Bronchiectasis
  10. DURVALUMAB [Suspect]
     Active Substance: DURVALUMAB
     Indication: Neoplasm
     Dosage: 10 MILLIGRAM/KILOGRAM, BIMONTHLY
     Route: 042
     Dates: start: 20181012, end: 20190329
  11. DURVALUMAB [Suspect]
     Active Substance: DURVALUMAB
     Indication: Squamous cell carcinoma
  12. DURVALUMAB [Suspect]
     Active Substance: DURVALUMAB
     Indication: Lung squamous cell carcinoma stage III
  13. PACLITAXEL [Concomitant]
     Active Substance: PACLITAXEL
     Indication: Laryngeal cancer
     Dosage: UNK, 45 MG/M2
  14. METRONIDAZOLE [Concomitant]
     Active Substance: METRONIDAZOLE
     Indication: Respiratory symptom
     Dosage: UNK 45 MG/M2
  15. CEFEPIME [Concomitant]
     Active Substance: CEFEPIME HYDROCHLORIDE
     Indication: Respiratory symptom
     Dosage: UNK 45 MG/M2
  16. CARBOPLATIN [Concomitant]
     Active Substance: CARBOPLATIN
     Indication: Laryngeal cancer
     Dosage: UNK
     Dates: start: 2012
  17. AMOXICILLIN\CLAVULANIC ACID [Concomitant]
     Active Substance: AMOXICILLIN\CLAVULANIC ACID
     Indication: Pneumonia
     Dosage: UNK, FOR 10 DAYS

REACTIONS (1)
  - Drug ineffective [Unknown]

NARRATIVE: CASE EVENT DATE: 20190101
